FAERS Safety Report 9825355 (Version 2)
Quarter: 2014Q1

REPORT INFORMATION
  Report Type: Spontaneous
  Country: US (occurrence: US)
  Receive Date: 20140117
  Receipt Date: 20140304
  Transmission Date: 20141002
  Serious: No
  Sender: FDA-Public Use
  Company Number: US-PFIZER INC-2014014296

PATIENT
  Sex: Female

DRUGS (1)
  1. SOLU-CORTEF [Suspect]
     Indication: BLOOD CORTISOL DECREASED
     Dosage: UNK
     Route: 048

REACTIONS (2)
  - Incorrect route of drug administration [Unknown]
  - Drug ineffective [Unknown]
